FAERS Safety Report 15585656 (Version 2)
Quarter: 2018Q4

REPORT INFORMATION
  Report Type: Spontaneous
  Country: US (occurrence: US)
  Receive Date: 20181104
  Receipt Date: 20181113
  Transmission Date: 20190205
  Serious: No
  Sender: FDA-Public Use
  Company Number: US-TEVA-2018-US-967186

PATIENT
  Sex: Female

DRUGS (1)
  1. CLEMASTINE FUMARATE. [Suspect]
     Active Substance: CLEMASTINE FUMARATE

REACTIONS (3)
  - Sneezing [Unknown]
  - Nasal congestion [Unknown]
  - Hypersensitivity [Unknown]
